FAERS Safety Report 20209469 (Version 1)
Quarter: 2021Q4

REPORT INFORMATION
  Report Type: Report from Study
  Country: AU (occurrence: AU)
  Receive Date: 20211221
  Receipt Date: 20211221
  Transmission Date: 20220303
  Serious: Yes (Other)
  Sender: FDA-Public Use
  Company Number: AU-002147023-NVSC2020AU090937

PATIENT
  Sex: Female

DRUGS (1)
  1. AIMOVIG [Suspect]
     Active Substance: ERENUMAB-AOOE
     Indication: Migraine
     Dosage: 140 MILLIGRAM, Q4WK
     Route: 058

REACTIONS (5)
  - Hemiplegia [Unknown]
  - Migraine [Unknown]
  - Vomiting [Unknown]
  - Migraine with aura [Unknown]
  - Product dose omission issue [Unknown]
